FAERS Safety Report 8986584 (Version 3)
Quarter: 2013Q1

REPORT INFORMATION
  Report Type: Spontaneous
  Country: US (occurrence: US)
  Receive Date: 20121226
  Receipt Date: 20130125
  Transmission Date: 20140127
  Serious: No
  Sender: FDA-Public Use
  Company Number: US-009507513-1212USA007595

PATIENT
  Age: 39 Year
  Sex: Female

DRUGS (6)
  1. ISENTRESS [Suspect]
     Dosage: 800 MG, QD
     Route: 048
     Dates: start: 20120924
  2. COMBIVIR [Suspect]
     Dosage: 2 DF, QD
     Route: 048
     Dates: start: 20120924
  3. KALETRA [Suspect]
     Dosage: 1 DF,
     Route: 048
     Dates: start: 20120924
  4. ALUVIA [Suspect]
     Dosage: 4 DF, QD
     Route: 048
     Dates: start: 20120923
  5. RETROVIR [Suspect]
     Dosage: 147 MG/KG/HR, QD
     Route: 042
     Dates: start: 20121121, end: 20121121
  6. RETROVIR [Suspect]
     Dosage: 74 MG/KG/HR
     Route: 042
     Dates: start: 20121121, end: 20121121

REACTIONS (4)
  - Cytomegalovirus infection [Unknown]
  - Latent tuberculosis [Unknown]
  - Gestational diabetes [Unknown]
  - Exposure during pregnancy [Unknown]
